FAERS Safety Report 9597131 (Version 3)
Quarter: 2014Q1

REPORT INFORMATION
  Report Type: Report from Study
  Country: US (occurrence: US)
  Receive Date: 20131004
  Receipt Date: 20140124
  Transmission Date: 20141002
  Serious: Yes (Hospitalization, Other)
  Sender: FDA-Public Use
  Company Number: US-ABBVIE-13P-163-1131290-00

PATIENT
  Age: 69 Year
  Sex: Male
  Weight: 88.98 kg

DRUGS (19)
  1. HUMIRA [Suspect]
     Indication: COLITIS ULCERATIVE
     Route: 058
     Dates: start: 20130327, end: 20130723
  2. TRICOR [Concomitant]
     Indication: BLOOD TRIGLYCERIDES INCREASED
     Dosage: DAILY
  3. DIOVAN [Concomitant]
     Indication: HYPERTENSION
     Dosage: IN THE MORNING
  4. TOPROL [Concomitant]
     Indication: HYPERTENSION
     Dosage: IN THE EVENING
  5. TOPROL [Concomitant]
     Dosage: 50 MG DAILY, 1 IN AM, 1 IN EVENING
  6. PROSTATE MEDICATION [Concomitant]
     Indication: PRODUCT USED FOR UNKNOWN INDICATION
  7. BLOOD THINNER [Concomitant]
     Indication: CORONARY ARTERIAL STENT INSERTION
  8. MULTIVITAMIN [Concomitant]
     Indication: PRODUCT USED FOR UNKNOWN INDICATION
  9. CO-Q10-CHLORELLA [Concomitant]
     Indication: PRODUCT USED FOR UNKNOWN INDICATION
  10. VITAMIN C [Concomitant]
     Indication: PRODUCT USED FOR UNKNOWN INDICATION
  11. CRESTOR [Concomitant]
     Indication: PRODUCT USED FOR UNKNOWN INDICATION
  12. CRESTOR [Concomitant]
     Dosage: 20 MG DAILY
  13. MAGNESIUM [Concomitant]
     Indication: PRODUCT USED FOR UNKNOWN INDICATION
  14. ALFUZOSIN [Concomitant]
     Indication: PRODUCT USED FOR UNKNOWN INDICATION
  15. FENOFIBRATE [Concomitant]
     Indication: PRODUCT USED FOR UNKNOWN INDICATION
  16. PANTOPRAZOLE [Concomitant]
     Indication: PRODUCT USED FOR UNKNOWN INDICATION
     Dosage: 40 MG DAILY
  17. DIGOXIN [Concomitant]
     Indication: PRODUCT USED FOR UNKNOWN INDICATION
     Dosage: 25 MG DAILY
  18. EFFIENT [Concomitant]
     Indication: PRODUCT USED FOR UNKNOWN INDICATION
     Dosage: 10 MG DAILY
  19. PLAVIX [Concomitant]
     Indication: PRODUCT USED FOR UNKNOWN INDICATION

REACTIONS (12)
  - Gastrointestinal tract irritation [Recovered/Resolved with Sequelae]
  - Gastrointestinal tract mucosal discolouration [Recovered/Resolved with Sequelae]
  - Colitis ulcerative [Recovered/Resolved with Sequelae]
  - Dehydration [Recovered/Resolved with Sequelae]
  - Palpitations [Recovered/Resolved]
  - Dysuria [Not Recovered/Not Resolved]
  - Dysstasia [Recovering/Resolving]
  - Asthenia [Recovering/Resolving]
  - Drug ineffective [Not Recovered/Not Resolved]
  - Drug ineffective [Unknown]
  - Rash erythematous [Recovered/Resolved]
  - Scab [Recovering/Resolving]
